FAERS Safety Report 5155449-9 (Version None)
Quarter: 2006Q4

REPORT INFORMATION
  Report Type: 
  Country: None (occurrence: None)
  Receive Date: 20061114
  Receipt Date: 20061101
  Transmission Date: 20070319
  Serious: Yes (Other)
  Sender: FDA-Public Use
  Company Number: US-2006-034092

PATIENT
  Sex: Female

DRUGS (1)
  1. YASMIN [Suspect]
     Dosage: 1 TAB(S), 1X/DAY; ORAL
     Route: 048
     Dates: start: 20020101

REACTIONS (3)
  - DRUG ADMINISTRATION ERROR [None]
  - NAUSEA [None]
  - SURGERY [None]
